FAERS Safety Report 24665092 (Version 1)
Quarter: 2024Q4

REPORT INFORMATION
  Report Type: Spontaneous
  Country: US (occurrence: None)
  Receive Date: 20241121
  Receipt Date: 20241121
  Transmission Date: 20250115
  Serious: Yes (Other)
  Sender: Public
  Company Number: None

PATIENT
  Age: 35 Year
  Sex: Female

DRUGS (2)
  1. PITOCIN [Suspect]
     Active Substance: OXYTOCIN
  2. DEVICE [Suspect]
     Active Substance: DEVICE

REACTIONS (5)
  - Device alarm issue [None]
  - Discomfort [None]
  - Foetal heart rate deceleration abnormality [None]
  - Device breakage [None]
  - Accidental overdose [None]

NARRATIVE: CASE EVENT DATE: 20241107
